FAERS Safety Report 21155782 (Version 3)
Quarter: 2022Q4

REPORT INFORMATION
  Report Type: Report from Study
  Country: AR (occurrence: AR)
  Receive Date: 20220801
  Receipt Date: 20221101
  Transmission Date: 20230112
  Serious: Yes (Hospitalization)
  Sender: FDA-Public Use
  Company Number: AR-NOVARTISPH-NVSC2022AR172709

PATIENT
  Age: 61 Year
  Sex: Female

DRUGS (1)
  1. MAYZENT [Suspect]
     Active Substance: SIPONIMOD
     Indication: Multiple sclerosis
     Dosage: 2 MG, QD (CAPSULE)
     Route: 048
     Dates: start: 20220704

REACTIONS (7)
  - COVID-19 [Unknown]
  - Condition aggravated [Unknown]
  - Multiple sclerosis [Unknown]
  - Muscle spasticity [Unknown]
  - Mobility decreased [Unknown]
  - Gait disturbance [Not Recovered/Not Resolved]
  - Lymphocyte count decreased [Unknown]

NARRATIVE: CASE EVENT DATE: 20220701
